FAERS Safety Report 11039276 (Version 1)
Quarter: 2015Q2

REPORT INFORMATION
  Report Type: Spontaneous
  Country: IT (occurrence: IT)
  Receive Date: 20150416
  Receipt Date: 20150416
  Transmission Date: 20150821
  Serious: Yes (Death, Hospitalization)
  Sender: FDA-Public Use
  Company Number: IT-ELI_LILLY_AND_COMPANY-IT201502003270

PATIENT
  Age: 51 Year
  Sex: Female

DRUGS (2)
  1. ALIMTA [Suspect]
     Active Substance: PEMETREXED DISODIUM
     Indication: LUNG CANCER METASTATIC
     Dosage: 735 MG, CYCLICAL
     Route: 042
     Dates: start: 20140922, end: 20150122
  2. VITAMIN B12 + FOLIC ACID [Concomitant]
     Indication: VITAMIN SUPPLEMENTATION
     Dosage: UNK, UNKNOWN
     Route: 065

REACTIONS (2)
  - Mucosal inflammation [Not Recovered/Not Resolved]
  - Bone marrow failure [Fatal]

NARRATIVE: CASE EVENT DATE: 20150202
